FAERS Safety Report 20659998 (Version 1)
Quarter: 2022Q1

REPORT INFORMATION
  Report Type: Spontaneous
  Country: PE (occurrence: PE)
  Receive Date: 20220331
  Receipt Date: 20220331
  Transmission Date: 20220423
  Serious: Yes (Death, Other)
  Sender: FDA-Public Use
  Company Number: PE-SLATE RUN PHARMACEUTICALS-22PE000994

PATIENT

DRUGS (15)
  1. VORICONAZOLE [Suspect]
     Active Substance: VORICONAZOLE
     Indication: Aspergillus infection
     Dosage: 4 MILLIGRAM PER KILOGRAM, Q 12 HR
     Route: 042
     Dates: start: 2021, end: 2021
  2. VORICONAZOLE [Suspect]
     Active Substance: VORICONAZOLE
     Dosage: 6 MILLIGRAM PER KILOGRAM, ON DAY 1
     Route: 042
     Dates: start: 2021, end: 2021
  3. METRONIDAZOLE [Suspect]
     Active Substance: METRONIDAZOLE
     Indication: Infection protozoal
     Dosage: 0.5 GRAM, BID
     Route: 048
     Dates: start: 2021
  4. OXYGEN [Concomitant]
     Active Substance: OXYGEN
     Indication: Product used for unknown indication
     Dosage: 30 LITERS PER MINUTE, DUPLICATING THE AMOUNT OF OXYGEN EVERY 2 DAYS, AFTER 4 DAYS
     Dates: start: 2021
  5. OXYGEN [Concomitant]
     Active Substance: OXYGEN
     Dosage: 20 LITERS PER MINUTE, DUPLICATING THE AMOUNT OF OXYGEN EVERY 2 DAYS, AFTER 3 DAYS
     Dates: start: 2021, end: 2021
  6. OXYGEN [Concomitant]
     Active Substance: OXYGEN
     Dosage: 10 LITERS PER MINUTE, DUPLICATING THE AMOUNT OF OXYGEN EVERY 2 DAYS, AFTER 2 DAYS
     Dates: start: 2021, end: 2021
  7. OXYGEN [Concomitant]
     Active Substance: OXYGEN
     Dosage: 5 LITERS PER MINUTE SINCE THE DAY OF ADMISSION
     Dates: start: 202103, end: 202103
  8. PROTEIN MODULE [Concomitant]
     Indication: Therapeutic procedure
     Dosage: 300 CC, Q 8 HR
     Route: 045
     Dates: start: 202103
  9. IMIPENEM AND CILASTATIN [Concomitant]
     Active Substance: CILASTATIN SODIUM\IMIPENEM
     Indication: Therapeutic procedure
     Dosage: 1 GRAM, Q 6 HR
     Route: 042
     Dates: start: 202103
  10. AMIKACIN [Concomitant]
     Active Substance: AMIKACIN
     Indication: Therapeutic procedure
     Dosage: 1 GRAM, QD
     Route: 042
     Dates: start: 202103
  11. RANITIDINE [Concomitant]
     Active Substance: RANITIDINE
     Indication: Therapeutic procedure
     Dosage: 50 MILLIGRAM, Q 8 HR
     Route: 042
     Dates: start: 202103
  12. METAMIZOLE [Concomitant]
     Active Substance: METAMIZOLE
     Indication: Therapeutic procedure
     Dosage: 1 GRAM
     Route: 042
     Dates: start: 202103
  13. ENOXAPARIN [Concomitant]
     Active Substance: ENOXAPARIN
     Indication: Therapeutic procedure
     Dosage: 40 MILLIGRAM, QD
     Route: 042
     Dates: start: 202103
  14. HYDROCORTISONE [Concomitant]
     Active Substance: HYDROCORTISONE
     Indication: Therapeutic procedure
     Dosage: 100 MILLIGRAM, Q 8 HR
     Dates: start: 202103
  15. ROCURONIUM BROMIDE [Concomitant]
     Active Substance: ROCURONIUM BROMIDE
     Indication: Therapeutic procedure
     Dosage: 50 MILLIGRAM
     Dates: start: 202103

REACTIONS (3)
  - Death [Fatal]
  - Therapy non-responder [Not Recovered/Not Resolved]
  - Sepsis [Unknown]

NARRATIVE: CASE EVENT DATE: 20210101
